FAERS Safety Report 9581835 (Version 2)
Quarter: 2013Q4

REPORT INFORMATION
  Report Type: Report from Study
  Country: DE (occurrence: DE)
  Receive Date: 20131002
  Receipt Date: 20131002
  Transmission Date: 20140711
  Serious: Yes (Hospitalization)
  Sender: FDA-Public Use
  Company Number: DE-ABBVIE-13P-062-1140465-00

PATIENT
  Age: 48 Year
  Sex: Female

DRUGS (2)
  1. HUMIRA [Suspect]
     Indication: PSORIASIS
     Route: 058
     Dates: start: 20121201, end: 20130626
  2. HUMIRA [Suspect]
     Route: 058
     Dates: start: 2013, end: 201308

REACTIONS (4)
  - Haemoglobin decreased [Recovering/Resolving]
  - Gastric haemorrhage [Recovered/Resolved]
  - Gastric ulcer [Not Recovered/Not Resolved]
  - Iron deficiency anaemia [Recovered/Resolved]
